FAERS Safety Report 9550291 (Version 2)
Quarter: 2019Q2

REPORT INFORMATION
  Report Type: Report from Study
  Country: US (occurrence: US)
  Receive Date: 20130924
  Receipt Date: 20190527
  Transmission Date: 20190711
  Serious: Yes (Hospitalization, Other)
  Sender: FDA-Public Use
  Company Number: US-SANOFI-AVENTIS-2013SA072039

PATIENT
  Age: 42 Year
  Sex: Male
  Weight: 72.57 kg

DRUGS (3)
  1. IBUPROFEN. [Concomitant]
     Active Substance: IBUPROFEN
     Indication: PAIN
     Dosage: UNK UNK,PRN
     Route: 065
     Dates: start: 20180202, end: 20180203
  2. TERIFLUNOMIDE. [Suspect]
     Active Substance: TERIFLUNOMIDE
     Dosage: 14 MG,QD
     Route: 048
     Dates: start: 2018
  3. TERIFLUNOMIDE. [Suspect]
     Active Substance: TERIFLUNOMIDE
     Indication: MULTIPLE SCLEROSIS
     Dosage: 14 MG,QD
     Route: 048
     Dates: start: 20120105, end: 2018

REACTIONS (8)
  - Muscle spasticity [Unknown]
  - Unevaluable event [Unknown]
  - Pancreatitis [Recovered/Resolved]
  - Alopecia [Unknown]
  - Abdominal pain [Recovered/Resolved]
  - Gait disturbance [Unknown]
  - Muscle disorder [Unknown]
  - Multiple sclerosis [Not Recovered/Not Resolved]

NARRATIVE: CASE EVENT DATE: 20161215
